FAERS Safety Report 20747627 (Version 1)
Quarter: 2022Q2

REPORT INFORMATION
  Report Type: Spontaneous
  Country: US (occurrence: US)
  Receive Date: 20220425
  Receipt Date: 20220425
  Transmission Date: 20220720
  Serious: No
  Sender: FDA-Public Use
  Company Number: US-SA-SAC20220421000905

PATIENT
  Age: 11 Year

DRUGS (2)
  1. DUPIXENT [Suspect]
     Active Substance: DUPILUMAB
     Indication: Dermatitis allergic
     Dosage: 200 MG, QOW
     Route: 058
  2. LIDOCAINE [Concomitant]
     Active Substance: LIDOCAINE
     Indication: Injection site reaction

REACTIONS (2)
  - Injection site reaction [Not Recovered/Not Resolved]
  - Product use in unapproved indication [Unknown]
